FAERS Safety Report 5035515-9 (Version None)
Quarter: 2006Q2

REPORT INFORMATION
  Report Type: 
  Country: None (occurrence: None)
  Receive Date: 20060525
  Receipt Date: 20060202
  Transmission Date: 20061013
  Serious: Yes (Hospitalization)
  Sender: FDA-Public Use
  Company Number: S05-USA-05213-01

PATIENT
  Age: 43 Year
  Sex: Female
  Weight: 83.9154 kg

DRUGS (9)
  1. CAMPRAL [Suspect]
     Indication: ALCOHOLISM
     Dosage: 666 MG TID PO
     Route: 048
     Dates: start: 20051001
  2. LEXAPRO [Concomitant]
  3. BUSPAR [Concomitant]
  4. DILTIAZEM HCL [Concomitant]
  5. LIDODERM [Concomitant]
  6. ZELNORM [Concomitant]
  7. AXERT [Concomitant]
  8. ETODOLAC [Concomitant]
  9. PRILOSEC [Concomitant]

REACTIONS (1)
  - CHEST PAIN [None]
